FAERS Safety Report 5010057-5 (Version None)
Quarter: 2006Q2

REPORT INFORMATION
  Report Type: 
  Country: None (occurrence: None)
  Receive Date: 20060523
  Receipt Date: 20060510
  Transmission Date: 20061013
  Serious: Yes (Disabling)
  Sender: FDA-Public Use
  Company Number: 2006062772

PATIENT
  Age: 26 Year
  Sex: Female

DRUGS (8)
  1. AZITHROMYCIN [Suspect]
     Indication: MYCOBACTERIUM AVIUM COMPLEX INFECTION
     Dosage: 600 MG (600 MG, 1 IN 1 D), ORAL
     Route: 048
     Dates: start: 20040825, end: 20050713
  2. RIFABUTIN (RIFABUTIN) [Suspect]
     Indication: MYCOBACTERIUM AVIUM COMPLEX INFECTION
     Dosage: 300 MG (300 MG, 1 IN 1 D)
     Dates: start: 20040825, end: 20051001
  3. EPIVIR [Suspect]
     Indication: HIV INFECTION
     Dosage: 300 MG (150 MG, 2 IN 1 D), ORAL
     Route: 048
     Dates: start: 20041025, end: 20051113
  4. ZERIT [Suspect]
     Indication: HIV INFECTION
     Dosage: 60 MG, ORAL
     Route: 048
     Dates: start: 20041025, end: 20051113
  5. KALETRA [Suspect]
     Indication: HIV INFECTION
     Dosage: 6 CAPSULES, ORAL
     Route: 048
     Dates: start: 20041025, end: 20050908
  6. ESANBUTOL (ETHAMBUTOL) [Concomitant]
  7. LEVOFLOXACIN [Concomitant]
  8. DIFLUCAN [Concomitant]

REACTIONS (10)
  - ATYPICAL MYCOBACTERIAL LYMPHADENITIS [None]
  - COUGH [None]
  - EYE INFLAMMATION [None]
  - GRANULOMA [None]
  - IMMUNE RECONSTITUTION SYNDROME [None]
  - LUNG DISORDER [None]
  - MYCOBACTERIUM AVIUM COMPLEX INFECTION [None]
  - PYREXIA [None]
  - UVEITIS [None]
  - VITREOUS DISORDER [None]
